FAERS Safety Report 4798351-4 (Version None)
Quarter: 2005Q4

REPORT INFORMATION
  Report Type: 
  Country: None (occurrence: None)
  Receive Date: 20051011
  Receipt Date: 20050930
  Transmission Date: 20060501
  Serious: Yes (Death)
  Sender: FDA-Public Use
  Company Number: USA-2005-0021128

PATIENT
  Age: 75 Year
  Sex: Male

DRUGS (4)
  1. OXYCONTIN [Suspect]
     Indication: CANCER PAIN
     Dosage: 80 MG, Q12H
     Dates: start: 20020401
  2. PERCOCET-5 (OXYCODONE TEREPHTHALATE) [Concomitant]
  3. DIGOXIN [Concomitant]
  4. ELAVIL [Concomitant]

REACTIONS (4)
  - CARDIAC TAMPONADE [None]
  - CATHETER RELATED COMPLICATION [None]
  - DEEP VEIN THROMBOSIS [None]
  - MYOCARDIAL INFARCTION [None]
